FAERS Safety Report 6613737-0 (Version None)
Quarter: 2010Q1

REPORT INFORMATION
  Report Type: 
  Country: None (occurrence: None)
  Receive Date: 20100226
  Receipt Date: 20100212
  Transmission Date: 20100710
  Serious: Yes (Hospitalization, Other)
  Sender: FDA-Public Use
  Company Number: 230066M10USA

PATIENT
  Sex: Female

DRUGS (1)
  1. REBIF [Suspect]
     Indication: MULTIPLE SCLEROSIS
     Dates: start: 20040101, end: 20090401

REACTIONS (4)
  - ASTROCYTOMA [None]
  - CONDITION AGGRAVATED [None]
  - GLIOMA [None]
  - MULTIPLE SCLEROSIS [None]
